FAERS Safety Report 16299866 (Version 1)
Quarter: 2019Q2

REPORT INFORMATION
  Report Type: Spontaneous
  Country: AE (occurrence: AE)
  Receive Date: 20190510
  Receipt Date: 20190510
  Transmission Date: 20190711
  Serious: Yes (Death, Hospitalization, Other)
  Sender: FDA-Public Use
  Company Number: AE-CELGENEUS-ARE-20190502470

PATIENT
  Sex: Female

DRUGS (2)
  1. ROMIDEPSIN. [Suspect]
     Active Substance: ROMIDEPSIN
     Indication: CUTANEOUS T-CELL LYMPHOMA
     Route: 041
  2. ROMIDEPSIN. [Suspect]
     Active Substance: ROMIDEPSIN
     Dosage: DOSE REDUCTION 25%
     Route: 041

REACTIONS (2)
  - Thrombocytopenia [Unknown]
  - Transplantation complication [Fatal]
